FAERS Safety Report 7735846-5 (Version None)
Quarter: 2011Q3

REPORT INFORMATION
  Report Type: 
  Country: None (occurrence: None)
  Receive Date: 20110908
  Receipt Date: 20110829
  Transmission Date: 20111222
  Serious: No
  Sender: FDA-Public Use
  Company Number: US-BIOGENIDEC-2011BI033394

PATIENT
  Sex: Female

DRUGS (1)
  1. TYSABRI [Suspect]
     Indication: MULTIPLE SCLEROSIS
     Route: 042
     Dates: start: 20090326

REACTIONS (5)
  - PAIN IN EXTREMITY [None]
  - CHEST DISCOMFORT [None]
  - FAECAL INCONTINENCE [None]
  - HEADACHE [None]
  - DYSPNOEA [None]
